FAERS Safety Report 12896820 (Version 2)
Quarter: 2016Q4

REPORT INFORMATION
  Report Type: Report from Study
  Country: DE (occurrence: DE)
  Receive Date: 20161031
  Receipt Date: 20161102
  Transmission Date: 20170207
  Serious: Yes (Hospitalization)
  Sender: FDA-Public Use
  Company Number: DE-PFIZER INC-2016490850

PATIENT
  Age: 82 Year
  Sex: Male
  Weight: 75 kg

DRUGS (5)
  1. AMLODIPIN /00972401/ [Concomitant]
     Active Substance: AMLODIPINE BESYLATE
     Indication: HYPERTENSION
     Dosage: 5 MG, 1X/DAY
     Route: 048
     Dates: start: 20160620
  2. AMLODIPINE W/VALSARTAN [Concomitant]
     Active Substance: AMLODIPINE\VALSARTAN
     Indication: HYPERTENSION
     Dosage: VALSARTAN 160 MG / AMLODIPIN 5 MG
     Route: 048
     Dates: start: 20160606
  3. DOXAZOSIN MESILATE [Concomitant]
     Active Substance: DOXAZOSIN MESYLATE
     Indication: HYPERTENSION
     Dosage: 4 MG, 1X/DAY
     Route: 048
     Dates: start: 20160620
  4. MSB0010718C [Suspect]
     Active Substance: AVELUMAB
     Indication: TRANSITIONAL CELL CARCINOMA
     Dosage: 10 MG/KG, CYCLIC (ONCE EVRY 2 WEEKS)
     Route: 042
     Dates: start: 20160304
  5. METOPROLOL. [Concomitant]
     Active Substance: METOPROLOL
     Indication: HYPERTENSION
     Dosage: 95 MG, 2X/DAY
     Route: 048
     Dates: start: 201507

REACTIONS (1)
  - Dyspnoea [Not Recovered/Not Resolved]

NARRATIVE: CASE EVENT DATE: 20161004
